FAERS Safety Report 19867977 (Version 3)
Quarter: 2021Q4

REPORT INFORMATION
  Report Type: Spontaneous
  Country: US (occurrence: US)
  Receive Date: 20210922
  Receipt Date: 20211129
  Transmission Date: 20220303
  Serious: Yes (Other)
  Sender: FDA-Public Use
  Company Number: US-JNJFOC-20210923827

PATIENT
  Age: 85 Year
  Sex: Male
  Weight: 106.69 kg

DRUGS (14)
  1. XARELTO [Suspect]
     Active Substance: RIVAROXABAN
     Indication: Atrial fibrillation
     Dosage: 20 MG, QD
     Route: 048
     Dates: start: 201211
  2. XARELTO [Suspect]
     Active Substance: RIVAROXABAN
     Indication: Knee arthroplasty
     Dosage: 20 MG, UNK
     Route: 048
     Dates: start: 20210804
  3. XARELTO [Suspect]
     Active Substance: RIVAROXABAN
     Indication: Cerebrovascular accident prophylaxis
  4. XARELTO [Suspect]
     Active Substance: RIVAROXABAN
     Indication: Thrombosis prophylaxis
  5. XARELTO [Suspect]
     Active Substance: RIVAROXABAN
     Indication: Thrombosis
  6. ASPIRIN [Suspect]
     Active Substance: ASPIRIN
     Indication: Product used for unknown indication
     Dosage: UNK
     Route: 065
  7. IRBESARTAN [Concomitant]
     Active Substance: IRBESARTAN
     Indication: Blood pressure abnormal
     Dosage: 300 MG, UNK
     Route: 065
  8. ATORVASTATIN [Concomitant]
     Active Substance: ATORVASTATIN
     Indication: Blood cholesterol abnormal
     Dosage: 40 MG, UNK
     Route: 065
  9. AMLODIPINE [Concomitant]
     Active Substance: AMLODIPINE BESYLATE
     Indication: Blood pressure abnormal
     Dosage: 5 MG, UNK
     Route: 065
  10. VITAMIN D3 [Concomitant]
     Active Substance: CHOLECALCIFEROL
  11. MAGNESIUM [Concomitant]
     Active Substance: MAGNESIUM
  12. ECOTRIN [Concomitant]
     Active Substance: ASPIRIN
     Indication: Product used for unknown indication
     Dosage: 85 MG, UNK
     Route: 065
  13. TADALAFIL [Concomitant]
     Active Substance: TADALAFIL
     Dosage: 5 MG, UNK
     Route: 065
  14. KRILL OIL [Concomitant]
     Active Substance: DIETARY SUPPLEMENT\KRILL OIL

REACTIONS (4)
  - Rectal haemorrhage [Unknown]
  - Blood urine present [Recovered/Resolved]
  - Bronchitis [Unknown]
  - Product label issue [Unknown]

NARRATIVE: CASE EVENT DATE: 20210813
